FAERS Safety Report 8425579 (Version 3)
Quarter: 2013Q1

REPORT INFORMATION
  Report Type: Spontaneous
  Country: US (occurrence: US)
  Receive Date: 20120224
  Receipt Date: 20130222
  Transmission Date: 20140127
  Serious: Yes (Other)
  Sender: FDA-Public Use
  Company Number: PHEH2012US003679

PATIENT
  Sex: Female

DRUGS (4)
  1. AREDIA [Suspect]
     Indication: PLASMA CELL MYELOMA
  2. VASOTEC [Concomitant]
     Dosage: 20 MG, QD
  3. CLARITIN [Concomitant]
     Dosage: 10 MG, UNK
  4. CELEBREX [Concomitant]
     Dosage: 200 MG, QD

REACTIONS (12)
  - Plasma cell myeloma [Unknown]
  - Neoplasm progression [Unknown]
  - Osteopenia [Unknown]
  - Breast cancer [Unknown]
  - Dyspnoea [Unknown]
  - Febrile neutropenia [Unknown]
  - Vaginal haemorrhage [Unknown]
  - Idiopathic thrombocytopenic purpura [Unknown]
  - Epistaxis [Unknown]
  - Sinusitis [Unknown]
  - Bursitis [Unknown]
  - Insomnia [Unknown]
